FAERS Safety Report 8197488-X (Version None)
Quarter: 2012Q1

REPORT INFORMATION
  Report Type: 
  Country: None (occurrence: None)
  Receive Date: 20120309
  Receipt Date: 20120229
  Transmission Date: 20120608
  Serious: No
  Sender: FDA-Public Use
  Company Number: BR-ASTRAZENECA-2011SE70726

PATIENT
  Age: 70 Year
  Sex: Male

DRUGS (2)
  1. CRESTOR [Suspect]
     Indication: BLOOD CHOLESTEROL INCREASED
     Dosage: DAILY
     Route: 048
  2. ATACAND HCT [Suspect]
     Indication: HYPERTENSION
     Dosage: 16/12.5 MG, DAILY
     Route: 048
     Dates: start: 20070101, end: 20110101

REACTIONS (2)
  - HYPERTENSION [None]
  - DRUG INEFFECTIVE [None]
